FAERS Safety Report 4757835-5 (Version None)
Quarter: 2005Q3

REPORT INFORMATION
  Report Type: 
  Country: None (occurrence: None)
  Receive Date: 20050830
  Receipt Date: 20050819
  Transmission Date: 20060218
  Serious: Yes (Hospitalization)
  Sender: FDA-Public Use
  Company Number: 2005-131223-NL

PATIENT
  Age: 62 Year
  Sex: Male

DRUGS (5)
  1. DANAPAROID SODIUM [Suspect]
     Dosage: 2000 ANTI_XA BID/2500 ANTI_XA BID/750 ANTI_XA TID SUBCUTANEOUS
     Route: 058
     Dates: start: 20050606, end: 20050607
  2. DANAPAROID SODIUM [Suspect]
     Dosage: 2000 ANTI_XA BID/2500 ANTI_XA BID/750 ANTI_XA TID SUBCUTANEOUS
     Route: 058
     Dates: start: 20050608, end: 20050613
  3. DANAPAROID SODIUM [Suspect]
     Dosage: 2000 ANTI_XA BID/2500 ANTI_XA BID/750 ANTI_XA TID SUBCUTANEOUS
     Route: 058
     Dates: start: 20050614, end: 20050616
  4. ENALAPRIL MALEATE AND HYDROCHLOROTHIAZIDE [Concomitant]
  5. FLUINDIONE [Concomitant]

REACTIONS (8)
  - HAEMATOMA [None]
  - HYPOTENSION [None]
  - LIVEDO RETICULARIS [None]
  - MOTOR DYSFUNCTION [None]
  - PERICARDIAL EFFUSION [None]
  - PERICARDITIS [None]
  - PLATELET COUNT ABNORMAL [None]
  - TACHYCARDIA [None]
